FAERS Safety Report 20861341 (Version 1)
Quarter: 2022Q2

REPORT INFORMATION
  Report Type: Spontaneous
  Country: AU (occurrence: AU)
  Receive Date: 20220523
  Receipt Date: 20220523
  Transmission Date: 20220721
  Serious: Yes (Death, Life-Threatening, Hospitalization, Other)
  Sender: FDA-Public Use
  Company Number: AU-MLMSERVICE-20220510-3550931-1

PATIENT
  Age: 6 Decade

DRUGS (4)
  1. QUETIAPINE FUMARATE [Suspect]
     Active Substance: QUETIAPINE FUMARATE
     Indication: Product used for unknown indication
     Route: 048
  2. ZOPICLONE [Suspect]
     Active Substance: ZOPICLONE
     Indication: Product used for unknown indication
     Dosage: UNKNOWN AMOUNTS
     Route: 048
  3. LAMOTRIGINE [Suspect]
     Active Substance: LAMOTRIGINE
     Indication: Product used for unknown indication
     Route: 048
  4. SODIUM BICARBONATE [Suspect]
     Active Substance: SODIUM BICARBONATE
     Indication: Intentional overdose
     Dosage: BOLUS
     Route: 048

REACTIONS (10)
  - Distributive shock [Fatal]
  - Intentional overdose [Fatal]
  - Hypernatraemia [Fatal]
  - Toxicity to various agents [Fatal]
  - Hypokalaemia [Fatal]
  - Somnolence [Unknown]
  - Depressed level of consciousness [Unknown]
  - Cardiotoxicity [Fatal]
  - Electrocardiogram ST segment depression [Unknown]
  - Electrocardiogram QRS complex prolonged [Recovered/Resolved]
